FAERS Safety Report 6697407-9 (Version None)
Quarter: 2010Q2

REPORT INFORMATION
  Report Type: 
  Country: None (occurrence: None)
  Receive Date: 20100426
  Receipt Date: 20100412
  Transmission Date: 20101027
  Serious: Yes (Disabling)
  Sender: FDA-Public Use
  Company Number: GB-MYLANLABS-2010S1006216

PATIENT
  Age: 29 Year
  Sex: Female
  Weight: 70 kg

DRUGS (6)
  1. VENLAFAXINE [Suspect]
     Indication: DEPRESSION
     Route: 048
     Dates: start: 20100204, end: 20100311
  2. CITALOPRAM [Concomitant]
     Indication: DRUG USE FOR UNKNOWN INDICATION
     Dates: start: 20090409
  3. GABAPENTIN [Concomitant]
     Indication: DRUG USE FOR UNKNOWN INDICATION
     Route: 048
     Dates: start: 20090213
  4. HYOSCINE HBR HYT [Concomitant]
     Indication: IRRITABLE BOWEL SYNDROME
     Route: 048
     Dates: start: 20091218
  5. METHYLCELLULOSE [Concomitant]
     Indication: CONSTIPATION
     Route: 048
     Dates: start: 20090201
  6. SODIUM PICOSULFATE [Concomitant]
     Indication: CONSTIPATION
     Route: 048
     Dates: start: 20091218

REACTIONS (2)
  - DYSARTHRIA [None]
  - HEMIPLEGIA [None]
